FAERS Safety Report 22890130 (Version 4)
Quarter: 2024Q2

REPORT INFORMATION
  Report Type: Spontaneous
  Country: US (occurrence: US)
  Receive Date: 20230831
  Receipt Date: 20240409
  Transmission Date: 20240716
  Serious: Yes (Hospitalization)
  Sender: FDA-Public Use
  Company Number: US-EPIZYME, INC-2022USEPIZYME0684

PATIENT
  Age: 34 Year
  Sex: Male
  Weight: 85 kg

DRUGS (44)
  1. TAZVERIK [Suspect]
     Active Substance: TAZEMETOSTAT HYDROBROMIDE
     Indication: Atypical teratoid/rhabdoid tumour of CNS
     Dosage: 800 MG, BID
     Route: 048
     Dates: start: 20220418
  2. TAZVERIK [Suspect]
     Active Substance: TAZEMETOSTAT HYDROBROMIDE
     Indication: Central nervous system neoplasm
  3. TAZVERIK [Suspect]
     Active Substance: TAZEMETOSTAT HYDROBROMIDE
     Indication: Off label use
  4. ACETAMINOPHEN [Concomitant]
     Active Substance: ACETAMINOPHEN
     Dosage: 500 MG
  5. ACIDOPHILUS PROBIOTIC BLEND [Concomitant]
  6. AZELASTINE HYDROCHLORIDE [Concomitant]
     Active Substance: AZELASTINE HYDROCHLORIDE
     Dosage: 137 M
  7. BACLOFEN [Concomitant]
     Active Substance: BACLOFEN
     Dosage: 10 MG
  8. CIMETIDINE [Concomitant]
     Active Substance: CIMETIDINE
     Dosage: 400 MG
  9. CRANBERRY [Concomitant]
     Active Substance: CRANBERRY
     Dosage: 500 MG
  10. FLUTICASONE PROPIONATE [Concomitant]
     Active Substance: FLUTICASONE PROPIONATE
     Dosage: 50 MCG/ACT
  11. STOOL SOFTENER (DOCUSATE) [Concomitant]
     Active Substance: DOCUSATE
     Dosage: 100 MG
  12. VITAMIN C [Concomitant]
     Active Substance: ASCORBIC ACID
     Dosage: 500 MG
  13. HERBALS [Concomitant]
     Active Substance: HERBALS
  14. DIPHENHYDRAMINE HYDROCHLORIDE [Concomitant]
     Active Substance: DIPHENHYDRAMINE HYDROCHLORIDE
     Dosage: 25 MG
  15. ENOXAPARIN SODIUM [Concomitant]
     Active Substance: ENOXAPARIN SODIUM
     Dosage: 40MG/0.4ML
  16. FAMOTIDINE [Concomitant]
     Active Substance: FAMOTIDINE
     Dosage: 40 MG
  17. FLUOXETINE HYDROCHLORIDE [Concomitant]
     Active Substance: FLUOXETINE HYDROCHLORIDE
     Dosage: 40 MG
  18. LORATADINE [Concomitant]
     Active Substance: LORATADINE
     Dosage: 10 MG
  19. HONEY FLAVOUR LIQUID [Concomitant]
  20. ACETAMINOPHEN\HYDROCODONE [Concomitant]
     Active Substance: ACETAMINOPHEN\HYDROCODONE
     Dosage: 7.5-32
  21. TYLENOL [Concomitant]
     Active Substance: ACETAMINOPHEN
  22. AMITRIPTYLINE [Concomitant]
     Active Substance: AMITRIPTYLINE
  23. AMOXICILLIN\CLAVULANATE POTASSIUM [Concomitant]
     Active Substance: AMOXICILLIN\CLAVULANATE POTASSIUM
  24. CIPROFLOXACIN [Concomitant]
     Active Substance: CIPROFLOXACIN
  25. STOOL SOFTENER (DOCUSATE) [Concomitant]
     Active Substance: DOCUSATE
  26. NORCO [Concomitant]
     Active Substance: ACETAMINOPHEN\HYDROCODONE BITARTRATE
  27. FLUOXETINE [Concomitant]
     Active Substance: FLUOXETINE HYDROCHLORIDE
  28. KEPPRA [Concomitant]
     Active Substance: LEVETIRACETAM
  29. KLONOPIN [Concomitant]
     Active Substance: CLONAZEPAM
  30. METOCLOPRAMIDE [Concomitant]
     Active Substance: METOCLOPRAMIDE
  31. MUCINEX [Concomitant]
     Active Substance: GUAIFENESIN
  32. NITROFURANTOIN [Concomitant]
     Active Substance: NITROFURANTOIN
  33. ONDANSETRON [Concomitant]
     Active Substance: ONDANSETRON
  34. VIMPAT [Concomitant]
     Active Substance: LACOSAMIDE
  35. ZINC [Concomitant]
     Active Substance: PYRITHIONE ZINC\ZINC\ZINC CHLORIDE
  36. SEROQUEL [Concomitant]
     Active Substance: QUETIAPINE FUMARATE
  37. CALCIUM [Concomitant]
     Active Substance: CALCIUM
  38. MIRALAX [Concomitant]
     Active Substance: POLYETHYLENE GLYCOL 3350
  39. CLOTRIMAZOLE [Concomitant]
     Active Substance: CLOTRIMAZOLE
  40. DIPHENHYDRAMINE [Concomitant]
     Active Substance: DIPHENHYDRAMINE
  41. ALBUTEROL\IPRATROPIUM [Concomitant]
     Active Substance: ALBUTEROL\IPRATROPIUM
  42. ALBUTEROL [Concomitant]
     Active Substance: ALBUTEROL
  43. GLYCOPYRROLATE [Concomitant]
     Active Substance: GLYCOPYRROLATE
  44. NYSTATIN [Concomitant]
     Active Substance: NYSTATIN

REACTIONS (5)
  - Pneumonia [Recovered/Resolved]
  - Oral candidiasis [Recovering/Resolving]
  - Salivary hypersecretion [Not Recovered/Not Resolved]
  - Product dose omission issue [Unknown]
  - Off label use [Unknown]
